FAERS Safety Report 8546930-0 (Version None)
Quarter: 2012Q3

REPORT INFORMATION
  Report Type: 
  Country: None (occurrence: None)
  Receive Date: 20120727
  Receipt Date: 20120119
  Transmission Date: 20120928
  Serious: No
  Sender: FDA-Public Use
  Company Number: US-ASTRAZENECA-2012SE04032

PATIENT
  Age: 51 Year
  Sex: Male
  Weight: 102.1 kg

DRUGS (1)
  1. SEROQUEL [Suspect]
     Indication: BIPOLAR DISORDER
     Route: 048
     Dates: start: 20100101

REACTIONS (6)
  - DEPRESSED MOOD [None]
  - RESTLESSNESS [None]
  - DRUG DOSE OMISSION [None]
  - ANXIETY [None]
  - CHEST DISCOMFORT [None]
  - BIPOLAR DISORDER [None]
